FAERS Safety Report 8367570-2 (Version None)
Quarter: 2012Q2

REPORT INFORMATION
  Report Type: 
  Country: None (occurrence: None)
  Receive Date: 20120517
  Receipt Date: 20120514
  Transmission Date: 20120825
  Serious: Yes (Other)
  Sender: FDA-Public Use
  Company Number: US-PFIZER INC-2012095938

PATIENT
  Sex: Female
  Weight: 72.562 kg

DRUGS (20)
  1. PLAVIX [Concomitant]
     Dosage: 75 MG, 2X/DAY
  2. NEURONTIN [Suspect]
     Indication: CARDIOVASCULAR DISORDER
     Dosage: 800 MG, DAILY
     Route: 048
     Dates: end: 20120416
  3. NEURONTIN [Suspect]
     Indication: KNEE ARTHROPLASTY
  4. ACCUPRIL [Suspect]
     Indication: BLOOD PRESSURE INCREASED
     Dosage: 10 MG, 3X/DAY
     Dates: start: 20120101
  5. LISINOPRIL [Concomitant]
     Dosage: 10 MG, 3X/DAY
  6. NEURONTIN [Suspect]
     Indication: GAIT DISTURBANCE
     Dosage: 500MG, AT BEDTIME
     Route: 048
     Dates: start: 20070101
  7. NEURONTIN [Suspect]
     Indication: GENERAL PHYSICAL HEALTH DETERIORATION
  8. PROZAC [Concomitant]
     Indication: DEPRESSION
     Dosage: 20 MG, 2X/DAY
  9. NEURONTIN [Suspect]
     Indication: ARTHRITIS
  10. NEURONTIN [Suspect]
     Indication: ARTHRALGIA
  11. ACCUPRIL [Suspect]
     Dosage: 40 MG, 2X/DAY
     Dates: start: 20120101, end: 20120416
  12. NEURONTIN [Suspect]
     Indication: LIMB DISCOMFORT
  13. NEURONTIN [Suspect]
     Indication: OSTEOARTHRITIS
  14. LIPITOR [Suspect]
     Indication: BLOOD CHOLESTEROL INCREASED
     Dosage: 20 MG, 3X/DAY
  15. PREMARIN [Suspect]
     Indication: HOT FLUSH
  16. PLAVIX [Concomitant]
     Indication: THROMBOSIS
     Dosage: 75 MG, 1X/DAY
  17. NEURONTIN [Suspect]
     Indication: BURSITIS
  18. LIPITOR [Suspect]
     Dosage: 20 MG, 2X/DAY
     Dates: end: 20120416
  19. PREMARIN [Suspect]
     Indication: HYSTERECTOMY
     Dosage: 0.625 MG, DAILY
     Dates: start: 20120101
  20. ACCUPRIL [Suspect]
     Dosage: 10 MG, 2X/DAY

REACTIONS (7)
  - GAIT DISTURBANCE [None]
  - OEDEMA PERIPHERAL [None]
  - BLOOD PRESSURE INCREASED [None]
  - EXPIRED DRUG ADMINISTERED [None]
  - ARTHRITIS [None]
  - BEDRIDDEN [None]
  - PAIN IN EXTREMITY [None]
